FAERS Safety Report 6068888-9 (Version None)
Quarter: 2009Q1

REPORT INFORMATION
  Report Type: 
  Country: None (occurrence: None)
  Receive Date: 20090203
  Receipt Date: 20090116
  Transmission Date: 20090719
  Serious: Yes (Hospitalization, Other)
  Sender: FDA-Public Use
  Company Number: 20080322

PATIENT
  Age: 64 Year
  Sex: Male

DRUGS (4)
  1. VENOFER [Suspect]
     Indication: IRON DEFICIENCY
     Dosage: 100 MG ONCE INTRAVENOUS
     Route: 042
     Dates: start: 20081104
  2. INNOHEP [Concomitant]
  3. ARANESP [Concomitant]
  4. GENTAMICIN SULFATE [Concomitant]

REACTIONS (6)
  - ABDOMINAL PAIN [None]
  - BLOOD PRESSURE INCREASED [None]
  - DIALYSIS DEVICE COMPLICATION [None]
  - HAEMATEMESIS [None]
  - HAEMOLYSIS [None]
  - PANCREATITIS ACUTE [None]
